FAERS Safety Report 5372618-3 (Version None)
Quarter: 2007Q2

REPORT INFORMATION
  Report Type: 
  Country: None (occurrence: None)
  Receive Date: 20070626
  Receipt Date: 20070614
  Transmission Date: 20071010
  Serious: Yes (Other)
  Sender: FDA-Public Use
  Company Number: GXKR2007DE05155

PATIENT
  Sex: Male
  Weight: 0.5 kg

DRUGS (1)
  1. SERTRALINE (NGX)(SERTRALINE) FILM-COATED TABLET [Suspect]
     Dosage: UNK, UNK, TRANSPLACENTAL
     Route: 064

REACTIONS (3)
  - CAESAREAN SECTION [None]
  - DRUG EXPOSURE DURING PREGNANCY [None]
  - PREMATURE BABY [None]
